FAERS Safety Report 7506400-5 (Version None)
Quarter: 2011Q2

REPORT INFORMATION
  Report Type: 
  Country: None (occurrence: None)
  Receive Date: 20110526
  Receipt Date: 20110519
  Transmission Date: 20111010
  Serious: Yes (Life-Threatening, Hospitalization, Other)
  Sender: FDA-Public Use
  Company Number: CH-ABBOTT-11P-151-0722201-00

PATIENT
  Age: 61 Year
  Sex: Male
  Weight: 80.812 kg

DRUGS (21)
  1. SPIRONOLACTONE [Concomitant]
     Indication: PRODUCT USED FOR UNKNOWN INDICATION
  2. METHOTREXATE [Suspect]
     Route: 048
     Dates: start: 20100716, end: 20100922
  3. VICODIN [Concomitant]
     Indication: PAIN
     Dosage: 1-1 1/2 TABLETS QID PRN
  4. HYDRALAZINE HCL [Concomitant]
     Indication: PRODUCT USED FOR UNKNOWN INDICATION
  5. ARAVA [Suspect]
     Indication: RHEUMATOID ARTHRITIS
     Route: 048
     Dates: start: 20100922, end: 20101122
  6. SYNTHROID [Concomitant]
     Indication: PRODUCT USED FOR UNKNOWN INDICATION
  7. METHOTREXATE [Suspect]
     Indication: RHEUMATOID ARTHRITIS
     Route: 058
     Dates: start: 20100401, end: 20100401
  8. NOVALGIN [Suspect]
     Indication: RHEUMATOID ARTHRITIS
     Route: 048
     Dates: start: 20110114, end: 20110117
  9. TRAZODONE HCL [Concomitant]
     Indication: PRODUCT USED FOR UNKNOWN INDICATION
     Dosage: QHS
  10. COREG [Concomitant]
     Indication: PRODUCT USED FOR UNKNOWN INDICATION
  11. ENBREL [Suspect]
     Indication: RHEUMATOID ARTHRITIS
     Route: 058
     Dates: start: 20101122, end: 20110121
  12. PREDNISONE [Suspect]
     Route: 048
     Dates: start: 20101129, end: 20101230
  13. ALDACTONE [Concomitant]
     Indication: PRODUCT USED FOR UNKNOWN INDICATION
     Dates: end: 20110131
  14. GLYBURIDE [Concomitant]
     Indication: PRODUCT USED FOR UNKNOWN INDICATION
     Dosage: DAILY
  15. HUMIRA [Suspect]
     Route: 058
     Dates: start: 20030101
  16. METHOTREXATE [Suspect]
     Route: 048
     Dates: start: 20100428, end: 20100715
  17. PREDNISONE [Suspect]
     Indication: RHEUMATOID ARTHRITIS
     Route: 048
     Dates: start: 20101015, end: 20101128
  18. HUMIRA [Suspect]
     Indication: RHEUMATOID ARTHRITIS
     Route: 041
     Dates: start: 20110121, end: 20110121
  19. FUROSEMIDE [Concomitant]
     Indication: PRODUCT USED FOR UNKNOWN INDICATION
     Dates: end: 20110131
  20. LASIX [Concomitant]
     Indication: PRODUCT USED FOR UNKNOWN INDICATION
  21. LISINOPRIL [Concomitant]
     Indication: PRODUCT USED FOR UNKNOWN INDICATION

REACTIONS (15)
  - ALTERED STATE OF CONSCIOUSNESS [None]
  - AMYLOIDOSIS [None]
  - CARDIAC FAILURE [None]
  - MUSCULOSKELETAL STIFFNESS [None]
  - DRY EYE [None]
  - HYPOAESTHESIA [None]
  - WEIGHT INCREASED [None]
  - PAIN [None]
  - CARDIAC FAILURE CONGESTIVE [None]
  - HYPERTHERMIA [None]
  - DRY MOUTH [None]
  - VENTRICULAR TACHYCARDIA [None]
  - SYNCOPE [None]
  - CARDIAC ARREST [None]
  - VENTRICULAR FIBRILLATION [None]
